FAERS Safety Report 24695044 (Version 1)
Quarter: 2024Q4

REPORT INFORMATION
  Report Type: Spontaneous
  Country: US (occurrence: None)
  Receive Date: 20241204
  Receipt Date: 20241204
  Transmission Date: 20250115
  Serious: Yes (Hospitalization)
  Sender: Public
  Company Number: None

PATIENT
  Age: 70 Year
  Sex: Female
  Weight: 106.1 kg

DRUGS (4)
  1. FLUOROURACIL [Suspect]
     Active Substance: FLUOROURACIL
     Dates: end: 20241114
  2. CAMPTOSAR [Suspect]
     Active Substance: IRINOTECAN HYDROCHLORIDE
     Dates: end: 20241114
  3. LEUCOVORIN CALCIUM [Suspect]
     Active Substance: LEUCOVORIN CALCIUM
     Dates: end: 20241114
  4. ELOXATIN [Suspect]
     Active Substance: OXALIPLATIN
     Dates: end: 20241114

REACTIONS (10)
  - Acute kidney injury [None]
  - Decreased appetite [None]
  - Neutrophil count decreased [None]
  - Nausea [None]
  - Vomiting [None]
  - Ventricular hypertrophy [None]
  - Cardiac failure congestive [None]
  - Metastatic neoplasm [None]
  - Dehydration [None]
  - Hypophagia [None]

NARRATIVE: CASE EVENT DATE: 20241125
